FAERS Safety Report 17300102 (Version 1)
Quarter: 2020Q1

REPORT INFORMATION
  Report Type: Spontaneous
  Country: US (occurrence: US)
  Receive Date: 20200122
  Receipt Date: 20200122
  Transmission Date: 20200409
  Serious: No
  Sender: FDA-Public Use
  Company Number: US-ALLERGAN-1917475US

PATIENT
  Age: 87 Year
  Sex: Female

DRUGS (2)
  1. RESTASIS [Suspect]
     Active Substance: CYCLOSPORINE
     Indication: DRY EYE
     Dosage: UNK, BID
     Route: 047
  2. THREE DIFFERENT UNSPECIFIED MEDICATIONS FOR GLAUCOMA [Concomitant]
     Indication: GLAUCOMA

REACTIONS (1)
  - Multiple use of single-use product [Unknown]
